FAERS Safety Report 23571542 (Version 2)
Quarter: 2024Q1

REPORT INFORMATION
  Report Type: Spontaneous
  Country: PL (occurrence: PL)
  Receive Date: 20240227
  Receipt Date: 20240305
  Transmission Date: 20240410
  Serious: Yes (Other)
  Sender: FDA-Public Use
  Company Number: PL-ABBVIE-5655496

PATIENT
  Age: 65 Year
  Sex: Male

DRUGS (4)
  1. VENETOCLAX [Suspect]
     Active Substance: VENETOCLAX
     Indication: Acute myeloid leukaemia
     Route: 048
     Dates: start: 20221014, end: 20231206
  2. FIRMAGON [Concomitant]
     Active Substance: DEGARELIX ACETATE
     Indication: Prostate cancer
     Route: 058
     Dates: start: 20230328
  3. AZACITIDINE [Concomitant]
     Active Substance: AZACITIDINE
     Indication: Acute myeloid leukaemia
  4. ABIRATERONE [Concomitant]
     Active Substance: ABIRATERONE
     Indication: Prostate cancer
     Route: 048
     Dates: start: 20230328

REACTIONS (6)
  - Neutropenia [Recovering/Resolving]
  - Staphylococcal bacteraemia [Recovered/Resolved]
  - Anaemia [Recovering/Resolving]
  - Lymphocyte count decreased [Unknown]
  - Pyrexia [Recovered/Resolved]
  - Minimal residual disease [Unknown]

NARRATIVE: CASE EVENT DATE: 20221001
